FAERS Safety Report 15439356 (Version 2)
Quarter: 2018Q4

REPORT INFORMATION
  Report Type: Spontaneous
  Country: JP (occurrence: JP)
  Receive Date: 20180928
  Receipt Date: 20181107
  Transmission Date: 20190204
  Serious: Yes (Hospitalization)
  Sender: FDA-Public Use
  Company Number: JP-TEVA-2018-JP-956957

PATIENT
  Age: 60 Year
  Sex: Female

DRUGS (1)
  1. MINOCYCLINE HYDROCHLORIDE. [Suspect]
     Active Substance: MINOCYCLINE HYDROCHLORIDE
     Indication: JAPANESE SPOTTED FEVER
     Dosage: 200MG/DAY X 3DAYS
     Route: 065

REACTIONS (3)
  - Hepatic function abnormal [Recovered/Resolved]
  - Meningitis aseptic [Recovering/Resolving]
  - Mononeuropathy multiplex [Recovering/Resolving]
